FAERS Safety Report 4323500-1 (Version None)
Quarter: 2004Q1

REPORT INFORMATION
  Report Type: 
  Country: None (occurrence: None)
  Receive Date: 20040325
  Receipt Date: 20040312
  Transmission Date: 20041129
  Serious: Yes (Hospitalization, Other)
  Sender: FDA-Public Use
  Company Number: PHHO2004JP03895

PATIENT
  Age: 58 Year
  Sex: Male
  Weight: 69 kg

DRUGS (7)
  1. DIOVAN [Suspect]
     Indication: HYPERTENSION
     Dosage: 80 MG, QD
     Route: 048
     Dates: start: 20021119, end: 20030812
  2. HUMACART-N [Concomitant]
     Indication: DIABETES MELLITUS
  3. KINEDAK [Concomitant]
     Indication: NERVE INJURY
  4. CYANOCOBALAMIN [Concomitant]
     Indication: NERVE INJURY
  5. EPADEL [Concomitant]
     Indication: NERVE INJURY
  6. MYSLEE [Concomitant]
     Indication: INSOMNIA
  7. ROHYPNOL [Concomitant]
     Indication: INSOMNIA

REACTIONS (13)
  - BLOOD CREATININE INCREASED [None]
  - BLOOD PRESSURE INADEQUATELY CONTROLLED [None]
  - CARDIAC FAILURE [None]
  - CARDIOMEGALY [None]
  - DISEASE PROGRESSION [None]
  - DYSPNOEA [None]
  - DYSPNOEA EXERTIONAL [None]
  - ECHOCARDIOGRAM ABNORMAL [None]
  - ELECTROCARDIOGRAM ST SEGMENT DEPRESSION [None]
  - HYPERTENSION [None]
  - PLEURAL EFFUSION [None]
  - RENAL FAILURE [None]
  - VENTRICULAR HYPERTROPHY [None]
